FAERS Safety Report 10028158 (Version 2)
Quarter: 2015Q2

REPORT INFORMATION
  Report Type: Spontaneous
  Country: US (occurrence: US)
  Receive Date: 20140321
  Receipt Date: 20150629
  Transmission Date: 20150821
  Serious: Yes (Death, Other)
  Sender: FDA-Public Use
  Company Number: US-SA-2014SA032246

PATIENT
  Age: 81 Year
  Sex: Male

DRUGS (1)
  1. PLAVIX [Suspect]
     Active Substance: CLOPIDOGREL BISULFATE
     Indication: ANTICOAGULANT THERAPY
     Route: 065
     Dates: start: 201006, end: 20101111

REACTIONS (2)
  - Multiple injuries [Unknown]
  - Thrombocytopenic purpura [Fatal]

NARRATIVE: CASE EVENT DATE: 201011
